FAERS Safety Report 7990844-1 (Version None)
Quarter: 2011Q4

REPORT INFORMATION
  Report Type: 
  Country: None (occurrence: None)
  Receive Date: 20111219
  Receipt Date: 20111208
  Transmission Date: 20120403
  Serious: Yes (Death, Disabling, Other)
  Sender: FDA-Public Use
  Company Number: AU-ACTELION-A-CH2011-53816

PATIENT
  Sex: Female
  Weight: 85 kg

DRUGS (9)
  1. LASIX [Concomitant]
  2. ACETAMINOPHEN [Concomitant]
  3. TRACLEER [Suspect]
     Dosage: 62.5 MG, BID
     Route: 048
     Dates: start: 20090201, end: 20090301
  4. PREDNISOLONE [Concomitant]
  5. CODEINE SULFATE [Concomitant]
  6. TRACLEER [Suspect]
     Indication: PULMONARY ARTERIAL HYPERTENSION
     Dosage: 125 MG, BID
     Route: 048
     Dates: start: 20090301, end: 20111203
  7. ALDACTONE [Concomitant]
  8. LYRICA [Concomitant]
  9. PLAQUENIL [Concomitant]

REACTIONS (5)
  - PULMONARY ARTERIAL HYPERTENSION [None]
  - DISEASE PROGRESSION [None]
  - INTERSTITIAL LUNG DISEASE [None]
  - DYSPNOEA [None]
  - SCLERODERMA [None]
